FAERS Safety Report 5670844-7 (Version None)
Quarter: 2008Q2

REPORT INFORMATION
  Report Type: 
  Country: None (occurrence: None)
  Receive Date: 20080305
  Receipt Date: 20070711
  Transmission Date: 20081010
  Serious: Yes (Other)
  Sender: FDA-Public Use
  Company Number: BDI-009828

PATIENT
  Sex: Female

DRUGS (1)
  1. ISOVUE-370 [Suspect]
     Indication: COMPUTERISED TOMOGRAM ABDOMEN
     Dosage: 100ML ONCE INTRAVENOUS
     Route: 042
     Dates: start: 20070710, end: 20070710

REACTIONS (4)
  - ERYTHEMA [None]
  - SNEEZING [None]
  - SPEECH DISORDER [None]
  - SWELLING FACE [None]
